FAERS Safety Report 7543285-5 (Version None)
Quarter: 2011Q2

REPORT INFORMATION
  Report Type: 
  Country: None (occurrence: None)
  Receive Date: 20110613
  Receipt Date: 20110531
  Transmission Date: 20111010
  Serious: Yes (Hospitalization, Other)
  Sender: FDA-Public Use
  Company Number: PHHY2011US48531

PATIENT
  Age: 66 Year
  Sex: Male

DRUGS (4)
  1. CARBOPLATIN [Suspect]
     Indication: AESTHESIONEUROBLASTOMA
     Dosage: UNK MG/M2, UNK
  2. RADIATION [Concomitant]
     Dosage: 2 GY, UNK
  3. ETOPOSIDE [Suspect]
     Indication: AESTHESIONEUROBLASTOMA
     Dosage: 120 MG/M2, UNK
  4. CISPLATIN [Suspect]
     Indication: AESTHESIONEUROBLASTOMA
     Dosage: 60 MG/M2, UNK

REACTIONS (12)
  - INAPPROPRIATE ANTIDIURETIC HORMONE SECRETION [None]
  - KLEBSIELLA BACTERAEMIA [None]
  - MUCOSAL INFLAMMATION [None]
  - PNEUMONIA [None]
  - PNEUMOCEPHALUS [None]
  - OSTEONECROSIS [None]
  - SOFT TISSUE INFECTION [None]
  - MENINGITIS [None]
  - DERMATITIS [None]
  - DIPLOPIA [None]
  - NEUTROPENIC SEPSIS [None]
  - HYPONATRAEMIA [None]
